FAERS Safety Report 5940848-5 (Version None)
Quarter: 2008Q4

REPORT INFORMATION
  Report Type: 
  Country: None (occurrence: None)
  Receive Date: 20081104
  Receipt Date: 20081021
  Transmission Date: 20090506
  Serious: Yes (Hospitalization)
  Sender: FDA-Public Use
  Company Number: US-BAXTER-2007BH009597

PATIENT
  Age: 44 Year
  Sex: Female

DRUGS (11)
  1. CYCLOPHOSPHAMIDE [Suspect]
     Indication: BREAST CANCER
     Route: 065
     Dates: start: 20070419, end: 20070601
  2. PACLITAXEL [Suspect]
     Indication: BREAST CANCER
     Route: 065
     Dates: start: 20070618, end: 20070828
  3. IBANDRONATE SODIUM [Suspect]
     Indication: BREAST CANCER
     Route: 065
     Dates: start: 20070912
  4. EPIRUBICIN [Suspect]
     Indication: BREAST CANCER
     Route: 065
     Dates: start: 20070419, end: 20070601
  5. CAPECITABINE [Suspect]
     Indication: BREAST CANCER
     Route: 065
     Dates: start: 20070618, end: 20070909
  6. TRASTUZUMAB [Suspect]
     Indication: BREAST CANCER
     Route: 065
     Dates: start: 20080111
  7. MARCUMAR [Concomitant]
     Indication: DRUG USE FOR UNKNOWN INDICATION
  8. ISCOVER [Concomitant]
     Indication: DRUG USE FOR UNKNOWN INDICATION
     Dates: start: 20070218, end: 20071102
  9. PREDNISOLONE [Concomitant]
     Indication: DRUG USE FOR UNKNOWN INDICATION
     Dates: start: 20070218
  10. FRAXIPARIN [Concomitant]
     Indication: DRUG USE FOR UNKNOWN INDICATION
     Dosage: DOSE UNIT:UNKNOWN
     Dates: start: 20070218, end: 20071102
  11. METAMIZOLE [Concomitant]
     Indication: DRUG USE FOR UNKNOWN INDICATION
     Dates: start: 20070218, end: 20071102

REACTIONS (2)
  - CHEST PAIN [None]
  - CHILLS [None]
